FAERS Safety Report 6170448-6 (Version None)
Quarter: 2009Q2

REPORT INFORMATION
  Report Type: 
  Country: None (occurrence: None)
  Receive Date: 20090428
  Receipt Date: 20090421
  Transmission Date: 20091009
  Serious: No
  Sender: FDA-Public Use
  Company Number: US-BAYER-200911247BCC

PATIENT
  Age: 69 Year
  Sex: Male
  Weight: 74 kg

DRUGS (3)
  1. ALEVE [Suspect]
     Indication: PAIN IN EXTREMITY
     Dosage: UNIT DOSE: 440 MG
     Route: 048
     Dates: start: 20081001, end: 20090101
  2. GABAPENTIN [Concomitant]
  3. NAPROXEN [Concomitant]

REACTIONS (1)
  - HAEMATOSPERMIA [None]
